FAERS Safety Report 5405419-8 (Version None)
Quarter: 2007Q3

REPORT INFORMATION
  Report Type: 
  Country: None (occurrence: None)
  Receive Date: 20070803
  Receipt Date: 20070723
  Transmission Date: 20080115
  Serious: Yes (Life-Threatening, Hospitalization)
  Sender: FDA-Public Use
  Company Number: US-PFIZER INC-2006080227

PATIENT
  Age: 89 Year
  Sex: Female

DRUGS (24)
  1. ALDACTONE [Suspect]
     Dosage: TEXT:UNKNOWN-FREQ:UNKNOWN
     Route: 065
  2. CEFAZOLIN [Suspect]
     Dosage: TEXT:UNKNOWN-FREQ:UNKNOWN
     Route: 051
  3. ADVAIR DISKUS 100/50 [Suspect]
     Dosage: TEXT:UNKNOWN-FREQ:UNKNOWN
     Route: 055
  4. COREG [Suspect]
     Dosage: TEXT:UNKNOWN-FREQ:UNKNOWN
     Route: 048
  5. TYLENOL (CAPLET) [Suspect]
     Dosage: TEXT:UNKNOWN-FREQ:UNKNOWN
     Route: 065
  6. REMERON [Suspect]
     Indication: DEPRESSION
     Dosage: DAILY DOSE:15MG-FREQ:UNKNOWN
     Route: 048
  7. ULTRAM [Suspect]
     Dosage: TEXT:UNKNOWN-FREQ:UNKNOWN
     Route: 065
  8. DOCUSATE SODIUM [Suspect]
     Dosage: TEXT:UNKNOWN-FREQ:UNKNOWN
     Route: 065
  9. ASPIRIN [Suspect]
     Dosage: TEXT:UNKNOWN-FREQ:UNKNOWN
     Route: 065
  10. PEPCID [Suspect]
     Dosage: TEXT:UNKNOWN-FREQ:UNKNOWN
     Route: 065
  11. LOVENOX [Suspect]
     Dosage: TEXT:UNKNOWN-FREQ:UNKNOWN
     Route: 065
  12. PREDNISONE TAB [Suspect]
     Dosage: TEXT:UNKNOWN-FREQ:UNKNOWN
     Route: 065
  13. LASIX [Suspect]
     Dosage: TEXT:UNKNOWN-FREQ:UNKNOWN
     Route: 065
  14. KEFLEX [Suspect]
     Dosage: TEXT:UNKNOWN-FREQ:UNKNOWN
     Route: 065
  15. SLOW-MAG [Suspect]
     Dosage: TEXT:UNKNOWN-FREQ:UNKNOWN
     Route: 065
  16. PRO-BANTHINE [Suspect]
     Dosage: TEXT:UNKNOWN-FREQ:UNKNOWN
     Route: 065
  17. BEXTRA [Suspect]
     Dosage: TEXT:UNKNOWN-FREQ:UNKNOWN
     Route: 065
  18. COZAAR [Suspect]
     Dosage: TEXT:UNKNOWN-FREQ:UNKNOWN
     Route: 065
  19. NORVASC [Suspect]
     Dosage: TEXT:UNKNOWN-FREQ:UNKNOWN
     Route: 065
  20. DARVOCET [Suspect]
     Dosage: TEXT:UNKNOWN-FREQ:UNKNOWN
     Route: 065
  21. DUONEB [Suspect]
     Dosage: TEXT:UNKNOWN-FREQ:UNKNOWN
     Route: 065
  22. EFFEXOR XR [Suspect]
     Dosage: DAILY DOSE:225MG-FREQ:UNKNOWN
     Route: 065
  23. TRAZODONE HCL [Suspect]
     Dosage: TEXT:UNKNOWN-FREQ:UNKNOWN
     Route: 065
  24. BUCINDOLOL HYDROCHLORIDE [Suspect]
     Dosage: TEXT:UNKNOWN-FREQ:UNKNOWN
     Route: 065

REACTIONS (3)
  - HIP FRACTURE [None]
  - HYPONATRAEMIA [None]
  - POST PROCEDURAL INFECTION [None]
